FAERS Safety Report 22352551 (Version 2)
Quarter: 2023Q2

REPORT INFORMATION
  Report Type: Spontaneous
  Country: JP (occurrence: JP)
  Receive Date: 20230522
  Receipt Date: 20230619
  Transmission Date: 20230721
  Serious: Yes (Hospitalization, Other)
  Sender: FDA-Public Use
  Company Number: JP-Ipsen Biopharmaceuticals, Inc.-2023-11532

PATIENT
  Age: 72 Year
  Sex: Female

DRUGS (13)
  1. LANREOTIDE ACETATE [Suspect]
     Active Substance: LANREOTIDE ACETATE
     Indication: Thyroid stimulating hormone-producing pituitary tumour
     Route: 058
     Dates: start: 20220328, end: 20220818
  2. LANREOTIDE ACETATE [Suspect]
     Active Substance: LANREOTIDE ACETATE
     Route: 058
  3. CABERGOLINE [Concomitant]
     Active Substance: CABERGOLINE
     Indication: Prolactin-producing pituitary tumour
     Dosage: 2 MG TWICE WEEKLY (MONDAYS AND WEDNESDAYS
  4. CABERGOLINE [Concomitant]
     Active Substance: CABERGOLINE
     Dosage: , 3 MG ONCE WEEKLY (FRIDAYS)
  5. ELDECALCITOL [Concomitant]
     Active Substance: ELDECALCITOL
  6. EVISTA [Concomitant]
     Active Substance: RALOXIFENE HYDROCHLORIDE
  7. ACTONEL [Concomitant]
     Active Substance: RISEDRONATE SODIUM
  8. ESAXERENONE [Concomitant]
     Active Substance: ESAXERENONE
  9. URSODIOL [Concomitant]
     Active Substance: URSODIOL
  10. MAGNESIUM OXIDE [Concomitant]
     Active Substance: MAGNESIUM OXIDE
  11. KETOPROFEN [Concomitant]
     Active Substance: KETOPROFEN
  12. METHYLCOBALAMIN [Concomitant]
     Active Substance: METHYLCOBALAMIN
  13. CALONAL [Concomitant]
     Active Substance: ACETAMINOPHEN

REACTIONS (3)
  - Pneumonia [Recovered/Resolved]
  - Faeces pale [Recovering/Resolving]
  - Supraventricular tachycardia [Recovering/Resolving]

NARRATIVE: CASE EVENT DATE: 20220401
